FAERS Safety Report 7872038-3 (Version None)
Quarter: 2011Q4

REPORT INFORMATION
  Report Type: 
  Country: None (occurrence: None)
  Receive Date: 20111029
  Receipt Date: 20110314
  Transmission Date: 20120403
  Serious: No
  Sender: FDA-Public Use
  Company Number: US-AMGEN-USASP2011013946

PATIENT
  Age: 46 Year
  Sex: Female

DRUGS (15)
  1. MAXALT [Concomitant]
     Dosage: 5 MG, UNK
  2. OXYCONTIN [Concomitant]
     Dosage: 10 MG, UNK
  3. ZYRTEC [Concomitant]
     Dosage: 5 MG, UNK
  4. VITAMIN B6 [Concomitant]
     Dosage: 500 MG, UNK
  5. LOVAZA [Concomitant]
     Dosage: 340 MG, UNK
  6. ENBREL [Suspect]
     Indication: PRODUCT USED FOR UNKNOWN INDICATION
     Dosage: 50 MG, QWK
     Route: 058
  7. PROMETHAZINE [Concomitant]
     Dosage: 12.5 MG, UNK
  8. ETODOLAC [Concomitant]
     Dosage: 400 MG, UNK
  9. MULTI-VITAMIN [Concomitant]
     Dosage: UNK
  10. OXYCODONE HCL [Concomitant]
     Dosage: 10 MG, UNK
  11. SALAGEN [Concomitant]
     Dosage: 5 MG, UNK
  12. BACLOFEN [Concomitant]
     Dosage: 20 MG, UNK
  13. GLUCOSAMINE CHONDROITIN [Concomitant]
     Dosage: UNK
  14. OMEPRAZOLE [Concomitant]
     Dosage: 20 MG, UNK
  15. VITAMIN D [Concomitant]
     Dosage: 1000 IU, UNK

REACTIONS (2)
  - FATIGUE [None]
  - FLUSHING [None]
